FAERS Safety Report 5323177-2 (Version None)
Quarter: 2007Q2

REPORT INFORMATION
  Report Type: 
  Country: None (occurrence: None)
  Receive Date: 20070220
  Receipt Date: 20061116
  Transmission Date: 20071010
  Serious: No
  Sender: FDA-Public Use
  Company Number: WAES 0611USA05078

PATIENT
  Age: 73 Year
  Sex: Female

DRUGS (6)
  1. JANUVIA [Suspect]
     Indication: BLOOD GLUCOSE INCREASED
     Dosage: 100 MG/DAILY/PO
     Route: 048
     Dates: start: 20061109, end: 20061115
  2. ACTOS [Concomitant]
  3. LASIX [Concomitant]
  4. ASPIRIN [Concomitant]
  5. METFORMIN HCL [Concomitant]
  6. MULTI-VITAMINS [Concomitant]

REACTIONS (5)
  - DYSGEUSIA [None]
  - HEADACHE [None]
  - MALAISE [None]
  - NAUSEA [None]
  - SOMNOLENCE [None]
